FAERS Safety Report 13355336 (Version 1)
Quarter: 2017Q1

REPORT INFORMATION
  Report Type: Spontaneous
  Country: US (occurrence: US)
  Receive Date: 20170321
  Receipt Date: 20170321
  Transmission Date: 20170429
  Serious: Yes (Life-Threatening, Hospitalization)
  Sender: FDA-Public Use
  Company Number: None

PATIENT
  Age: 33 Year
  Sex: Female
  Weight: 88.45 kg

DRUGS (2)
  1. ALPRAZOLAM. [Concomitant]
     Active Substance: ALPRAZOLAM
  2. LAMOTRIGINE. [Suspect]
     Active Substance: LAMOTRIGINE
     Indication: GENERALISED ANXIETY DISORDER
     Route: 048
     Dates: start: 20161129, end: 20161219

REACTIONS (6)
  - Burns second degree [None]
  - Eye disorder [None]
  - Toxic epidermal necrolysis [None]
  - Vaginal disorder [None]
  - Oral disorder [None]
  - Throat irritation [None]

NARRATIVE: CASE EVENT DATE: 20161215
